FAERS Safety Report 19477612 (Version 1)
Quarter: 2021Q2

REPORT INFORMATION
  Report Type: Spontaneous
  Country: US (occurrence: US)
  Receive Date: 20210630
  Receipt Date: 20210630
  Transmission Date: 20210717
  Serious: Yes (Life-Threatening, Hospitalization)
  Sender: FDA-Public Use
  Company Number: US-MYLANLABS-2021M1038676

PATIENT
  Age: 47 Year
  Sex: Male

DRUGS (1)
  1. FENTANYL. [Suspect]
     Active Substance: FENTANYL
     Indication: PRODUCT USED FOR UNKNOWN INDICATION
     Dosage: INITIAL DOSE UNKNOWN; LATER DECREASED TO 4 CC/KG AND FINALLY DISCONTINUED

REACTIONS (2)
  - Respiratory disorder [Recovering/Resolving]
  - Muscle rigidity [Recovering/Resolving]
